FAERS Safety Report 4527150-3 (Version None)
Quarter: 2004Q4

REPORT INFORMATION
  Report Type: 
  Country: None (occurrence: None)
  Receive Date: 20041126
  Receipt Date: 20040826
  Transmission Date: 20050328
  Serious: Yes (Other)
  Sender: FDA-Public Use
  Company Number: 2004230335US

PATIENT
  Age: 74 Year
  Sex: Female
  Weight: 57.6 kg

DRUGS (14)
  1. ZYVOX [Suspect]
     Indication: GLYCOPEPTIDE ANTIBIOTIC RESISTANT ENTEROCOCCAL INFECTION
     Dosage: 600 MG, BID, IV
     Route: 042
     Dates: start: 20040729
  2. PROCRIT (ERYTHROPOIETIN) [Concomitant]
  3. MEGACE [Concomitant]
  4. CARDIZEM [Concomitant]
  5. ACCUPRIL [Concomitant]
  6. PHOSLO [Concomitant]
  7. TRENTAL [Concomitant]
  8. CATAPRES [Concomitant]
  9. TYLENOL (CAPLET) [Concomitant]
  10. SYNTHROID [Concomitant]
  11. LOPRESSOR [Concomitant]
  12. BENADRYL [Concomitant]
  13. NORVASC [Concomitant]
  14. CALCIJEX [Concomitant]

REACTIONS (1)
  - NEUTROPENIA [None]
